FAERS Safety Report 20469332 (Version 1)
Quarter: 2022Q1

REPORT INFORMATION
  Report Type: Spontaneous
  Country: US (occurrence: None)
  Receive Date: 20220213
  Receipt Date: 20220213
  Transmission Date: 20220423
  Serious: No
  Sender: FDA-Public Use
  Company Number: None

PATIENT
  Age: 50 Year
  Sex: Female
  Weight: 44.55 kg

DRUGS (1)
  1. DULOXETINE [Suspect]
     Active Substance: DULOXETINE
     Indication: Hypersensitivity
     Dosage: OTHER QUANTITY : 1 CAPSULE(S);?FREQUENCY : DAILY;?
     Route: 048
     Dates: start: 20220207, end: 20220208

REACTIONS (6)
  - Sleep disorder [None]
  - Anxiety [None]
  - Feeling abnormal [None]
  - Photophobia [None]
  - Mydriasis [None]
  - Hypertension [None]

NARRATIVE: CASE EVENT DATE: 20220207
